FAERS Safety Report 7500674-2 (Version None)
Quarter: 2011Q2

REPORT INFORMATION
  Report Type: 
  Country: None (occurrence: None)
  Receive Date: 20110517
  Receipt Date: 20110506
  Transmission Date: 20111010
  Serious: Yes (Other)
  Sender: FDA-Public Use
  Company Number: LEO-2011-00412

PATIENT
  Age: 63 Year
  Sex: Male

DRUGS (2)
  1. ORGARAN [Concomitant]
  2. INNOHEP [Suspect]
     Indication: HIP ARTHROPLASTY
     Dosage: (4500 IU), SUBCUTANEOUS
     Route: 058

REACTIONS (1)
  - HEPARIN-INDUCED THROMBOCYTOPENIA [None]
